FAERS Safety Report 8286046-4 (Version None)
Quarter: 2012Q2

REPORT INFORMATION
  Report Type: 
  Country: None (occurrence: None)
  Receive Date: 20120416
  Receipt Date: 20120406
  Transmission Date: 20120825
  Serious: Yes (Other)
  Sender: FDA-Public Use
  Company Number: US-BIOGENIDEC-2012BI012216

PATIENT
  Age: 43 Year
  Sex: Female

DRUGS (2)
  1. AVONEX [Suspect]
     Indication: MULTIPLE SCLEROSIS
     Route: 030
     Dates: start: 20060818, end: 20100415
  2. AVONEX [Suspect]
     Route: 030

REACTIONS (6)
  - RENAL SURGERY [None]
  - HYPOAESTHESIA [None]
  - FEELING ABNORMAL [None]
  - PAIN IN EXTREMITY [None]
  - STRESS [None]
  - COORDINATION ABNORMAL [None]
